FAERS Safety Report 4944355-8 (Version None)
Quarter: 2006Q1

REPORT INFORMATION
  Report Type: 
  Country: None (occurrence: None)
  Receive Date: 20060315
  Receipt Date: 20051223
  Transmission Date: 20060701
  Serious: Yes (Other)
  Sender: FDA-Public Use
  Company Number: US-MERCK-0512USA03796

PATIENT
  Age: 74 Year
  Sex: Male
  Weight: 115 kg

DRUGS (2)
  1. VIOXX [Suspect]
     Indication: ARTHRALGIA
     Route: 048
     Dates: start: 20040115, end: 20040421
  2. TYLENOL (CAPLET) [Concomitant]
     Route: 065

REACTIONS (10)
  - ARTHROPATHY [None]
  - BACK PAIN [None]
  - CEREBROVASCULAR ACCIDENT [None]
  - DIZZINESS [None]
  - DYSARTHRIA [None]
  - HYPERLIPIDAEMIA [None]
  - MASTOID DISORDER [None]
  - MONARTHRITIS [None]
  - PROSTATISM [None]
  - TRANSIENT ISCHAEMIC ATTACK [None]
